FAERS Safety Report 6359379-6 (Version None)
Quarter: 2009Q3

REPORT INFORMATION
  Report Type: 
  Country: None (occurrence: None)
  Receive Date: 20090917
  Receipt Date: 20090909
  Transmission Date: 20100115
  Serious: Yes (Hospitalization)
  Sender: FDA-Public Use
  Company Number: JP-BRISTOL-MYERS SQUIBB COMPANY-14688295

PATIENT
  Age: 64 Year
  Sex: Female
  Weight: 51 kg

DRUGS (14)
  1. SPRYCEL [Suspect]
     Indication: ACUTE LYMPHOCYTIC LEUKAEMIA
     Dosage: 26MAR09 TO 14APR09; 28APR09 TO 15MAY09; AND 27MAY09 TO 15JUN09
     Route: 048
     Dates: start: 20090326, end: 20090617
  2. CYCLOPHOSPHAMIDE [Suspect]
     Indication: ACUTE LYMPHOCYTIC LEUKAEMIA
     Route: 042
     Dates: start: 20090325, end: 20090325
  3. VINCRISTINE SULFATE [Suspect]
     Indication: ACUTE LYMPHOCYTIC LEUKAEMIA
     Route: 042
     Dates: start: 20090325, end: 20090325
  4. DAUNORUBICIN HCL [Suspect]
     Indication: ACUTE LYMPHOCYTIC LEUKAEMIA
     Route: 042
     Dates: start: 20090325, end: 20090325
  5. CYTARABINE [Concomitant]
     Indication: ACUTE LYMPHOCYTIC LEUKAEMIA
     Dosage: FORM INJ
     Dates: start: 20090325, end: 20090325
  6. METHOTREXATE [Concomitant]
     Indication: ACUTE LYMPHOCYTIC LEUKAEMIA
     Dosage: FORM INJ
     Dates: start: 20090325, end: 20090325
  7. NEUPOGEN [Concomitant]
     Dosage: FORM INJ
     Route: 058
     Dates: start: 20090403, end: 20090408
  8. PREDNISOLONE [Concomitant]
     Indication: ACUTE LYMPHOCYTIC LEUKAEMIA
     Dosage: FORM TABS
     Route: 048
     Dates: start: 20090325, end: 20090331
  9. VANCOMYCIN HCL [Concomitant]
     Dosage: GRAN
     Route: 048
     Dates: start: 20090402, end: 20090408
  10. CLOSTRIDIUM BUTYRICUM [Concomitant]
     Route: 048
     Dates: start: 20090403
  11. SULFAMETHOXAZOLE AND TRIMETHOPRIM [Concomitant]
     Route: 048
     Dates: start: 20090404
  12. POLYMYXIN-B-SULFATE [Concomitant]
     Dosage: 1 DF - 300000 UNITS
     Route: 048
     Dates: start: 20090404
  13. FUNGIZONE [Concomitant]
     Dosage: FORM SOL
     Route: 048
     Dates: start: 20090404
  14. REBAMIPIDE [Concomitant]
     Route: 048
     Dates: start: 20090404

REACTIONS (5)
  - ANAEMIA [None]
  - CYTOMEGALOVIRUS ENTEROCOLITIS [None]
  - NEUTROPHIL COUNT DECREASED [None]
  - PLATELET COUNT DECREASED [None]
  - WHITE BLOOD CELL COUNT DECREASED [None]
